FAERS Safety Report 7897502-2 (Version None)
Quarter: 2011Q4

REPORT INFORMATION
  Report Type: 
  Country: None (occurrence: None)
  Receive Date: 20111107
  Receipt Date: 20111028
  Transmission Date: 20120403
  Serious: Yes (Hospitalization)
  Sender: FDA-Public Use
  Company Number: DE-JNJFOC-20111009070

PATIENT
  Age: 61 Year
  Sex: Male

DRUGS (2)
  1. XARELTO [Suspect]
     Indication: IMMOBILE
     Route: 048
     Dates: start: 20110601
  2. XARELTO [Suspect]
     Indication: THROMBOSIS PROPHYLAXIS
     Route: 048
     Dates: start: 20110601

REACTIONS (2)
  - HAEMORRHAGE [None]
  - COMPARTMENT SYNDROME [None]
